FAERS Safety Report 5504438-0 (Version None)
Quarter: 2007Q4

REPORT INFORMATION
  Report Type: 
  Country: None (occurrence: None)
  Receive Date: 20071101
  Receipt Date: 20071013
  Transmission Date: 20080405
  Serious: Yes (Other)
  Sender: FDA-Public Use
  Company Number: US-PFIZER INC-2007085813

PATIENT

DRUGS (2)
  1. CHANTIX [Suspect]
  2. ALCOHOL [Suspect]

REACTIONS (1)
  - LOSS OF CONSCIOUSNESS [None]
